FAERS Safety Report 6694140-4 (Version None)
Quarter: 2010Q2

REPORT INFORMATION
  Report Type: 
  Country: None (occurrence: None)
  Receive Date: 20100423
  Receipt Date: 20090625
  Transmission Date: 20101027
  Serious: No
  Sender: FDA-Public Use
  Company Number: A0795325A

PATIENT
  Age: 1 Year
  Sex: Male
  Weight: 11.4 kg

DRUGS (3)
  1. FLOVENT [Suspect]
     Indication: ASTHMA
     Dosage: 88MCG TWICE PER DAY
     Route: 055
     Dates: start: 20090301
  2. XOPENEX [Suspect]
     Indication: ASTHMA
     Route: 055
     Dates: start: 20090301
  3. PREVACID [Concomitant]

REACTIONS (2)
  - EAR INFECTION [None]
  - THROAT IRRITATION [None]
